FAERS Safety Report 25657671 (Version 1)
Quarter: 2025Q3

REPORT INFORMATION
  Report Type: Spontaneous
  Country: US (occurrence: US)
  Receive Date: 20250808
  Receipt Date: 20250808
  Transmission Date: 20251021
  Serious: No
  Sender: RANBAXY
  Company Number: US-SUN PHARMACEUTICAL INDUSTRIES LTD-2024R1-474009

PATIENT
  Sex: Female

DRUGS (2)
  1. ODOMZO [Suspect]
     Active Substance: SONIDEGIB
     Indication: Basal cell carcinoma
     Dosage: UNK UNK, OD
     Route: 048
     Dates: start: 20240919
  2. ODOMZO [Suspect]
     Active Substance: SONIDEGIB
     Dosage: UNK UNK, OD
     Route: 048
     Dates: start: 20240919

REACTIONS (6)
  - Muscular weakness [Unknown]
  - Product use issue [Unknown]
  - Epistaxis [Unknown]
  - Platelet count abnormal [Unknown]
  - Red blood cell count abnormal [Unknown]
  - Nausea [Unknown]
